FAERS Safety Report 16609852 (Version 1)
Quarter: 2019Q3

REPORT INFORMATION
  Report Type: Spontaneous
  Country: US (occurrence: US)
  Receive Date: 20190722
  Receipt Date: 20190722
  Transmission Date: 20191004
  Serious: No
  Sender: FDA-Public Use
  Company Number: US-ASTRAZENECA-2019SF00312

PATIENT
  Age: 28985 Day
  Sex: Male
  Weight: 96.6 kg

DRUGS (8)
  1. ELIQUIS [Concomitant]
     Active Substance: APIXABAN
     Indication: ANTICOAGULANT THERAPY
     Route: 048
     Dates: start: 201603
  2. OMEPRAZOLE. [Suspect]
     Active Substance: OMEPRAZOLE
     Indication: DYSPEPSIA
     Route: 048
  3. TORSEMIDE. [Concomitant]
     Active Substance: TORSEMIDE
     Indication: CARDIAC FAILURE CONGESTIVE
     Route: 048
  4. PRAVASTATIN. [Concomitant]
     Active Substance: PRAVASTATIN
     Indication: BLOOD CHOLESTEROL
     Route: 048
  5. METOPROLOL. [Suspect]
     Active Substance: METOPROLOL
     Indication: HYPERTENSION
     Route: 048
  6. FINASTERIDE. [Concomitant]
     Active Substance: FINASTERIDE
     Indication: BENIGN PROSTATIC HYPERPLASIA
     Route: 048
  7. SYMBICORT [Suspect]
     Active Substance: BUDESONIDE\FORMOTEROL FUMARATE DIHYDRATE
     Indication: CHRONIC OBSTRUCTIVE PULMONARY DISEASE
     Dosage: 2 PUFFS TWICE A DAY
     Route: 055
     Dates: start: 201905
  8. VITAMINS NOS [Concomitant]
     Active Substance: VITAMINS

REACTIONS (7)
  - Chronic obstructive pulmonary disease [Unknown]
  - Extra dose administered [Unknown]
  - Blood pressure increased [Unknown]
  - Wrong technique in device usage process [Unknown]
  - Dizziness [Unknown]
  - Atrial fibrillation [Unknown]
  - Fluid retention [Unknown]

NARRATIVE: CASE EVENT DATE: 20190710
